FAERS Safety Report 7355925-4 (Version None)
Quarter: 2011Q1

REPORT INFORMATION
  Report Type: 
  Country: None (occurrence: None)
  Receive Date: 20110316
  Receipt Date: 20110310
  Transmission Date: 20110831
  Serious: Yes (Other)
  Sender: FDA-Public Use
  Company Number: CH-ABBOTT-11P-151-0706993-00

PATIENT
  Age: 50 Year
  Sex: Female
  Weight: 60 kg

DRUGS (1)
  1. HUMIRA [Suspect]
     Indication: RHEUMATOID ARTHRITIS
     Dosage: 2 IN 1 MONTH, MONOTHERAPY
     Dates: start: 20100520

REACTIONS (7)
  - CHEST PAIN [None]
  - LIVER SARCOIDOSIS [None]
  - RASH PAPULAR [None]
  - ASTHENIA [None]
  - PULMONARY SARCOIDOSIS [None]
  - COUGH [None]
  - GENERAL PHYSICAL HEALTH DETERIORATION [None]
